FAERS Safety Report 9555563 (Version 1)
Quarter: 2013Q3

REPORT INFORMATION
  Report Type: Spontaneous
  Country: US (occurrence: None)
  Receive Date: 20130904
  Receipt Date: 20130904
  Transmission Date: 20140515
  Serious: Yes (Hospitalization, Other)
  Sender: FDA-Public Use
  Company Number: A-US2012-74123

PATIENT
  Age: 53 Year
  Sex: Female

DRUGS (1)
  1. VELETRI [Suspect]
     Indication: PULMONARY ARTERIAL HYPERTENSION
     Dosage: 12 NG/KG, PER MIN, INTRAVENOUS
     Route: 042
     Dates: start: 20121017

REACTIONS (2)
  - Device occlusion [None]
  - Catheter placement [None]
